FAERS Safety Report 17214874 (Version 1)
Quarter: 2019Q4

REPORT INFORMATION
  Report Type: Spontaneous
  Country: KR (occurrence: KR)
  Receive Date: 20191230
  Receipt Date: 20191230
  Transmission Date: 20200122
  Serious: Yes (Hospitalization)
  Sender: FDA-Public Use
  Company Number: KR-SA-2019SA354386

PATIENT
  Age: 65 Year
  Sex: Female

DRUGS (1)
  1. SOLIQUA 100/33 [Suspect]
     Active Substance: INSULIN GLARGINE\LIXISENATIDE
     Indication: BLOOD GLUCOSE
     Dosage: UNK UNK, UNK
     Route: 058

REACTIONS (2)
  - Hyperglycaemia [Not Recovered/Not Resolved]
  - Pancreatic disorder [Unknown]

NARRATIVE: CASE EVENT DATE: 2019
